FAERS Safety Report 6907937-X (Version None)
Quarter: 2010Q3

REPORT INFORMATION
  Report Type: 
  Country: None (occurrence: None)
  Receive Date: 20100805
  Receipt Date: 20100728
  Transmission Date: 20110219
  Serious: Yes (Hospitalization, Other)
  Sender: FDA-Public Use
  Company Number: US-BAYER-201018515BCC

PATIENT
  Age: 54 Year
  Sex: Female
  Weight: 86 kg

DRUGS (6)
  1. ALEVE [Suspect]
     Indication: BACK PAIN
     Dosage: UNIT DOSE: 220 MG
     Route: 048
  2. ALEVE [Suspect]
     Dosage: TOTAL DAILY DOSE: 440 MG  UNIT DOSE: 220 MG
     Route: 048
     Dates: start: 20100714
  3. LISINOPRIL [Concomitant]
     Route: 065
  4. NORVASC [Concomitant]
     Route: 065
  5. PRESCRIPTION POTASSIUM [Concomitant]
     Route: 065
  6. UNKNOWN CHOLESTEROL MEDICATION [Concomitant]
     Route: 065

REACTIONS (10)
  - EYE PRURITUS [None]
  - EYE SWELLING [None]
  - HYPERSENSITIVITY [None]
  - LIP SWELLING [None]
  - LOSS OF CONSCIOUSNESS [None]
  - MALAISE [None]
  - MUSCLE TIGHTNESS [None]
  - NAUSEA [None]
  - PRURITUS [None]
  - URTICARIA [None]
